FAERS Safety Report 8160030-3 (Version None)
Quarter: 2012Q1

REPORT INFORMATION
  Report Type: 
  Country: None (occurrence: None)
  Receive Date: 20120223
  Receipt Date: 20120216
  Transmission Date: 20120608
  Serious: Yes (Hospitalization)
  Sender: FDA-Public Use
  Company Number: FR-GLAXOSMITHKLINE-B0781898A

PATIENT
  Sex: Male

DRUGS (6)
  1. AMITRIPTYLINE HCL [Concomitant]
     Dosage: 15DROP PER DAY
     Route: 048
     Dates: end: 20111210
  2. ACETAMINOPHEN [Concomitant]
  3. LITHIUM CARBONATE [Concomitant]
     Dosage: 250MG THREE TIMES PER DAY
     Route: 048
     Dates: end: 20111210
  4. ARIXTRA [Suspect]
     Indication: THROMBOSIS PROPHYLAXIS
     Route: 065
     Dates: start: 20111104, end: 20111121
  5. LEVOTHYROXINE SODIUM [Concomitant]
     Route: 048
  6. ZOLPIDEM [Concomitant]
     Dosage: 1UNIT PER DAY
     Route: 048
     Dates: end: 20111210

REACTIONS (2)
  - RETROPERITONEAL HAEMATOMA [None]
  - ABDOMINAL PAIN [None]
